FAERS Safety Report 8983235 (Version 1)
Quarter: 2012Q4

REPORT INFORMATION
  Report Type: 
  Country: US (occurrence: US)
  Receive Date: 20121224
  Receipt Date: 20121224
  Transmission Date: 20130627
  Serious: Yes (Other)
  Sender: FDA-Public Use
  Company Number: PHEH2012US025027

PATIENT
  Sex: Female

DRUGS (1)
  1. EXELON PATCH [Suspect]
     Dosage: 9.5 mg
     Route: 062

REACTIONS (3)
  - Cerebrovascular accident [Unknown]
  - Delusion [Unknown]
  - Incorrect drug administration duration [Unknown]
